FAERS Safety Report 4936856-3 (Version None)
Quarter: 2006Q1

REPORT INFORMATION
  Report Type: 
  Country: None (occurrence: None)
  Receive Date: 20060307
  Receipt Date: 20060202
  Transmission Date: 20060701
  Serious: Yes (Hospitalization)
  Sender: FDA-Public Use
  Company Number: JP-MERCK-0602USA02944

PATIENT
  Age: 65 Year
  Sex: Male

DRUGS (1)
  1. FOSAMAX [Suspect]
     Route: 048
     Dates: start: 20040401, end: 20040501

REACTIONS (1)
  - GASTRIC ULCER HAEMORRHAGE [None]
